FAERS Safety Report 9866381 (Version 3)
Quarter: 2015Q1

REPORT INFORMATION
  Report Type: Spontaneous
  Country: US (occurrence: US)
  Receive Date: 20140203
  Receipt Date: 20150216
  Transmission Date: 20150721
  Serious: No
  Sender: FDA-Public Use
  Company Number: US-ALLERGAN-1320071US

PATIENT
  Age: 90 Year
  Sex: Male

DRUGS (3)
  1. RESTASIS [Suspect]
     Active Substance: CYCLOSPORINE
     Indication: DRY EYE
     Dosage: 2 GTT, BID
     Route: 047
  2. REVIVE                             /01220707/ [Concomitant]
     Indication: DRY EYE
  3. INJECTION FOR MACULAR DEGENERATION [Concomitant]

REACTIONS (4)
  - Therapeutic response unexpected [Unknown]
  - Vision blurred [Recovered/Resolved]
  - Abnormal sensation in eye [Recovered/Resolved]
  - Eye discharge [Recovered/Resolved]
